FAERS Safety Report 16190520 (Version 1)
Quarter: 2019Q2

REPORT INFORMATION
  Report Type: Spontaneous
  Country: FR (occurrence: FR)
  Receive Date: 20190412
  Receipt Date: 20190412
  Transmission Date: 20190711
  Serious: Yes (Other)
  Sender: FDA-Public Use
  Company Number: FR-MYLANLABS-2019M1034750

PATIENT
  Age: 81 Year
  Sex: Female

DRUGS (4)
  1. SOLU-MEDROL [Suspect]
     Active Substance: METHYLPREDNISOLONE SODIUM SUCCINATE
     Indication: PREMEDICATION
     Dosage: 80 MILLIGRAM, CYCLE
     Route: 042
     Dates: start: 20180810, end: 20180810
  2. OXALIPLATIN. [Suspect]
     Active Substance: OXALIPLATIN
     Indication: CHEMOTHERAPY
     Dosage: 4?ME , CYCLE
     Route: 042
     Dates: start: 20180810, end: 20180810
  3. ZOPHREN                            /00955301/ [Suspect]
     Active Substance: ONDANSETRON
     Indication: PREMEDICATION
     Dosage: 8 MILLIGRAM, CYCLE
     Route: 042
     Dates: start: 20180810, end: 20180810
  4. LEVOFOLINATE DE CALCIUM [Suspect]
     Active Substance: LEVOLEUCOVORIN CALCIUM
     Indication: CHEMOTHERAPY
     Dosage: UNK UNK, CYCLE
     Route: 042
     Dates: start: 20180810, end: 20180810

REACTIONS (1)
  - Tremor [Recovered/Resolved]

NARRATIVE: CASE EVENT DATE: 20180810
